FAERS Safety Report 9600253 (Version 2)
Quarter: 2013Q4

REPORT INFORMATION
  Report Type: Spontaneous
  Country: US (occurrence: US)
  Receive Date: 20131004
  Receipt Date: 20131004
  Transmission Date: 20140711
  Serious: No
  Sender: FDA-Public Use
  Company Number: US-AMGEN-USASP2013030193

PATIENT
  Age: 76 Year
  Sex: Female
  Weight: 57.14 kg

DRUGS (17)
  1. ENBREL [Suspect]
     Indication: RHEUMATOID ARTHRITIS
     Dosage: UNK
  2. ASPIRIN BUFFERED [Concomitant]
     Dosage: 325 MG, UNK
  3. CALCIUM D                          /00944201/ [Concomitant]
     Dosage: UNK
  4. VITAMIN B 12 [Concomitant]
     Dosage: 100 MUG, UNK
  5. CRANBERRY                          /01512301/ [Concomitant]
     Dosage: 300 MG, UNK
  6. LANOXIN [Concomitant]
     Dosage: 0.125 MG, UNK
  7. CARDIZEM CD [Concomitant]
     Dosage: UNK, 180MG/24
  8. NEXIUM                             /01479302/ [Concomitant]
     Dosage: 10 MG, UNK
  9. ADVAIR HFA [Concomitant]
     Dosage: UNK, AER115/21
  10. FUROSEMIDE [Concomitant]
     Dosage: 20MG/2ML
  11. METHOTREXATE [Concomitant]
     Dosage: UNK, 100/4
  12. MAGNESIUM                          /07349401/ [Concomitant]
     Dosage: 200 MG, UNK
  13. METOPROLOL [Concomitant]
     Dosage: 25 MG, UNK
  14. POTASSIUM [Concomitant]
     Dosage: 25 UNK, 25MEQ EF
  15. ROPINIROLE [Concomitant]
     Dosage: 3 MG, UNK
  16. SPIRONOLACTON [Concomitant]
     Dosage: 25 MG, UNK
  17. SENOKOT                            /00142201/ [Concomitant]
     Dosage: 8.6 MG, UNK

REACTIONS (4)
  - Nausea [Unknown]
  - Asthenia [Unknown]
  - Drug hypersensitivity [Unknown]
  - Dry mouth [Unknown]
